FAERS Safety Report 6689267-7 (Version None)
Quarter: 2010Q2

REPORT INFORMATION
  Report Type: 
  Country: None (occurrence: None)
  Receive Date: 20100416
  Receipt Date: 20100331
  Transmission Date: 20101027
  Serious: Yes (Hospitalization)
  Sender: FDA-Public Use
  Company Number: CIO10002652

PATIENT
  Age: 61 Year
  Sex: Female
  Weight: 69.2 kg

DRUGS (4)
  1. PEPTO-BISMOL OROGINAL FORMULA, ORIGINAL FLAVOR(BISMUTH SUBSALICYLATE 2 [Suspect]
     Indication: ABDOMINAL DISCOMFORT
     Dosage: 15 ML, 1 ONLY, ORAL
     Route: 048
     Dates: start: 20100205, end: 20100205
  2. PEPTO-BISMOL OROGINAL FORMULA, ORIGINAL FLAVOR(BISMUTH SUBSALICYLATE 2 [Suspect]
     Indication: VOMITING
     Dosage: 15 ML, 1 ONLY, ORAL
     Route: 048
     Dates: start: 20100205, end: 20100205
  3. SYNTHROID [Concomitant]
  4. LOVASTATIN [Concomitant]

REACTIONS (11)
  - ANAPHYLACTIC SHOCK [None]
  - BLOOD GLUCOSE INCREASED [None]
  - BLOOD THYROID STIMULATING HORMONE DECREASED [None]
  - CHEST DISCOMFORT [None]
  - DRUG HYPERSENSITIVITY [None]
  - GLOMERULAR FILTRATION RATE DECREASED [None]
  - LYMPHOCYTE PERCENTAGE DECREASED [None]
  - NEUTROPHIL COUNT INCREASED [None]
  - NEUTROPHIL PERCENTAGE INCREASED [None]
  - URINE ANALYSIS ABNORMAL [None]
  - WHITE BLOOD CELL COUNT INCREASED [None]
